FAERS Safety Report 18165744 (Version 2)
Quarter: 2020Q3

REPORT INFORMATION
  Report Type: Report from Study
  Country: IT (occurrence: IT)
  Receive Date: 20200819
  Receipt Date: 20200827
  Transmission Date: 20201103
  Serious: Yes (Other)
  Sender: FDA-Public Use
  Company Number: IT-AUROBINDO-AUR-APL-2020-037370

PATIENT
  Age: 6 Month
  Sex: Female

DRUGS (2)
  1. GANCICLOVIR. [Suspect]
     Active Substance: GANCICLOVIR
     Indication: CONGENITAL CYTOMEGALOVIRUS INFECTION
     Dosage: 6 MILLIGRAM/KILOGRAM, TWO TIMES A DAY
     Route: 065
  2. VALGANCICLOVIR FILM COATED TABLETS [Suspect]
     Active Substance: VALGANCICLOVIR
     Indication: CONGENITAL CYTOMEGALOVIRUS INFECTION
     Dosage: 15 MILLIGRAM/KILOGRAM, TWO TIMES A DAY
     Route: 065

REACTIONS (2)
  - Drug resistance [Unknown]
  - Gene mutation [Unknown]
